FAERS Safety Report 17550172 (Version 6)
Quarter: 2021Q4

REPORT INFORMATION
  Report Type: Spontaneous
  Country: US (occurrence: US)
  Receive Date: 20200317
  Receipt Date: 20211103
  Transmission Date: 20220303
  Serious: No
  Sender: FDA-Public Use
  Company Number: US-PFIZER INC-2020114906

PATIENT
  Age: 73 Year
  Sex: Female
  Weight: 80 kg

DRUGS (1)
  1. PRISTIQ EXTENDED-RELEASE [Suspect]
     Active Substance: DESVENLAFAXINE SUCCINATE
     Indication: Depression
     Dosage: 50 MG
     Dates: start: 1993

REACTIONS (4)
  - Hiccups [Unknown]
  - Oropharyngeal discomfort [Unknown]
  - Productive cough [Not Recovered/Not Resolved]
  - Dry mouth [Unknown]
